FAERS Safety Report 4843004-7 (Version None)
Quarter: 2005Q4

REPORT INFORMATION
  Report Type: 
  Country: None (occurrence: None)
  Receive Date: 20051201
  Receipt Date: 20010702
  Transmission Date: 20060501
  Serious: Yes (Hospitalization)
  Sender: FDA-Public Use
  Company Number: ES-ROCHE-263706

PATIENT
  Age: 42 Year
  Sex: Male
  Weight: 82 kg

DRUGS (7)
  1. INTERFERON ALFA-2A [Suspect]
     Route: 058
     Dates: start: 20010302, end: 20010619
  2. RIBAVIRIN [Suspect]
     Dosage: WITH FOOD.
     Route: 048
     Dates: start: 20010302, end: 20010619
  3. D4T [Concomitant]
     Dosage: ALSO REPORTED AS STOPPED ON 28 JUN 2001.
     Dates: start: 19990512
  4. DDI [Concomitant]
     Dosage: ALSO REPORTED AS STOPPED ON 28 JUN 2001.
     Dates: start: 19990512
  5. EFAVIRENZ [Concomitant]
     Dosage: ALSO REPORTED AS STOPPED ON 28 JUN 2001.
     Dates: start: 19990512
  6. ABACAVIR [Concomitant]
     Dosage: ALSO REPORTED AS STOPPED ON 28 JUN 2001.
     Dates: start: 19990512
  7. COTRIMOXAZOLE [Concomitant]
     Dates: start: 19960920

REACTIONS (2)
  - ASCITES [None]
  - DIARRHOEA [None]
